FAERS Safety Report 4965311-X (Version None)
Quarter: 2006Q2

REPORT INFORMATION
  Report Type: 
  Country: None (occurrence: None)
  Receive Date: 20060406
  Receipt Date: 20051006
  Transmission Date: 20061013
  Serious: Yes (Hospitalization, Disabling)
  Sender: FDA-Public Use
  Company Number: US-MERCK-0510USA05839

PATIENT
  Age: 65 Year
  Sex: Male
  Weight: 95 kg

DRUGS (22)
  1. VIOXX [Suspect]
     Indication: ARTHRITIS
     Route: 048
     Dates: start: 19991011, end: 20030812
  2. ACIPHEX [Concomitant]
     Indication: GASTROOESOPHAGEAL REFLUX DISEASE
     Route: 065
  3. GUAIFENESIN [Concomitant]
     Route: 065
  4. LEVAQUIN [Suspect]
     Route: 048
  5. DIOVAN [Concomitant]
     Indication: HYPERTENSION
     Route: 048
  6. FLEXERIL [Concomitant]
     Indication: MUSCLE SPASMS
     Route: 048
  7. FLEXERIL [Concomitant]
     Route: 048
  8. NITROSTAT [Concomitant]
     Route: 060
  9. TYLENOL (CAPLET) [Concomitant]
     Indication: HEADACHE
     Route: 065
  10. NITROGLYCERIN [Concomitant]
     Route: 061
  11. VIOXX [Suspect]
     Route: 048
     Dates: start: 19991011, end: 20030812
  12. CARDOTEK-30 [Concomitant]
     Route: 065
  13. PREVACID [Concomitant]
     Route: 048
  14. ALTACE [Concomitant]
     Route: 048
  15. ALTACE [Concomitant]
     Route: 048
  16. TOPROL-XL [Concomitant]
     Route: 065
  17. PEPCID [Concomitant]
     Route: 048
  18. PLAVIX [Concomitant]
     Route: 048
  19. ASPIRIN [Concomitant]
     Route: 048
  20. LIPITOR [Suspect]
     Indication: HYPERLIPIDAEMIA
     Route: 048
     Dates: start: 20010501, end: 20010601
  21. CLONAZEPAM [Concomitant]
     Indication: RESTLESS LEGS SYNDROME
     Route: 048
  22. NIASPAN [Concomitant]
     Route: 048

REACTIONS (32)
  - ACROCHORDON [None]
  - ACUTE MYOCARDIAL INFARCTION [None]
  - ACUTE SINUSITIS [None]
  - ASPARTATE AMINOTRANSFERASE INCREASED [None]
  - BRADYCARDIA [None]
  - BRONCHITIS [None]
  - CHEST PAIN [None]
  - CORONARY ARTERY DISEASE [None]
  - CORONARY ARTERY OCCLUSION [None]
  - COSTOCHONDRITIS [None]
  - EAR INFECTION [None]
  - EAR PAIN [None]
  - FALL [None]
  - FLATULENCE [None]
  - GASTROENTERITIS VIRAL [None]
  - HAEMOGLOBIN DECREASED [None]
  - HEADACHE [None]
  - HYPERLIPIDAEMIA [None]
  - HYPERTENSION [None]
  - JOINT INJURY [None]
  - MELANOCYTIC NAEVUS [None]
  - MYALGIA [None]
  - PAIN IN EXTREMITY [None]
  - RHINITIS [None]
  - RHINITIS ALLERGIC [None]
  - RIB FRACTURE [None]
  - SENSATION OF PRESSURE [None]
  - SINUS HEADACHE [None]
  - STOMACH DISCOMFORT [None]
  - THROMBOCYTOPENIA [None]
  - UPPER RESPIRATORY TRACT INFECTION [None]
  - VIRAL SINUSITIS [None]
